FAERS Safety Report 7654263-X (Version None)
Quarter: 2011Q3

REPORT INFORMATION
  Report Type: 
  Country: None (occurrence: None)
  Receive Date: 20110803
  Receipt Date: 20110722
  Transmission Date: 20111222
  Serious: No
  Sender: FDA-Public Use
  Company Number: US-B.I. PHARMACEUTICALS,INC./RIDGEFIELD-2011-BP-14626BP

PATIENT
  Age: 78 Year
  Sex: Male

DRUGS (6)
  1. FELODIPINE [Concomitant]
  2. METOPROLOL TARTRATE [Concomitant]
  3. LISINOPRIL [Concomitant]
     Indication: HYPERTENSION
  4. PRAVASTATIN [Concomitant]
     Indication: BLOOD CHOLESTEROL INCREASED
  5. SPIRIVA [Suspect]
     Indication: CHRONIC OBSTRUCTIVE PULMONARY DISEASE
     Dosage: 18 MCG
     Route: 055
     Dates: start: 20100101
  6. WARFARIN SODIUM [Concomitant]
     Indication: HEART VALVE REPLACEMENT

REACTIONS (2)
  - DYSPNOEA [None]
  - RASH [None]
